FAERS Safety Report 4687510-7 (Version None)
Quarter: 2005Q2

REPORT INFORMATION
  Report Type: 
  Country: None (occurrence: None)
  Receive Date: 20050609
  Receipt Date: 20020614
  Transmission Date: 20051028
  Serious: Yes (Hospitalization)
  Sender: FDA-Public Use
  Company Number: ZA-SANOFI-SYNTHELABO-D01200200124

PATIENT
  Sex: Male
  Weight: 103 kg

DRUGS (3)
  1. ALFUZOSIN [Suspect]
     Route: 048
     Dates: start: 20011024, end: 20031026
  2. METFORMIN [Concomitant]
     Dosage: 2550 MG
     Route: 065
     Dates: start: 19910101
  3. ASPIRIN [Concomitant]
     Dosage: 300 MG
     Route: 065
     Dates: start: 19990101, end: 20020529

REACTIONS (1)
  - MYOCARDIAL INFARCTION [None]
